FAERS Safety Report 14452958 (Version 2)
Quarter: 2018Q3

REPORT INFORMATION
  Report Type: Spontaneous
  Country: US (occurrence: US)
  Receive Date: 20180129
  Receipt Date: 20180705
  Transmission Date: 20181010
  Serious: Yes (Death, Hospitalization, Other)
  Sender: FDA-Public Use
  Company Number: US-SA-2018SA021645

PATIENT
  Age: 64 Year
  Sex: Female

DRUGS (6)
  1. NEURONTIN [Concomitant]
     Active Substance: GABAPENTIN
     Dosage: 400 MG
  2. NORCO [Concomitant]
     Active Substance: ACETAMINOPHEN\HYDROCODONE BITARTRATE
     Dosage: 7.5 MG
  3. FLEXERIL [CEFIXIME] [Concomitant]
     Dosage: 10 MG
  4. CLARITINE [Concomitant]
     Active Substance: LORATADINE
     Dosage: 10 MG
  5. DUPIXENT [Suspect]
     Active Substance: DUPILUMAB
     Indication: DERMATITIS ATOPIC
     Dosage: 300 MG,UNK
     Route: 058
     Dates: end: 20180106
  6. METHOTREXATE [METHOTREXATE SODIUM] [Concomitant]
     Dosage: UNK
     Dates: start: 201712

REACTIONS (4)
  - Clostridium difficile infection [Fatal]
  - Cardiac failure congestive [Fatal]
  - Sepsis [Fatal]
  - Cerebrovascular accident [Fatal]

NARRATIVE: CASE EVENT DATE: 2017
